FAERS Safety Report 15361078 (Version 1)
Quarter: 2018Q3

REPORT INFORMATION
  Report Type: Spontaneous
  Country: US (occurrence: US)
  Receive Date: 20180831
  Receipt Date: 20180831
  Transmission Date: 20181010
  Serious: No
  Sender: FDA-Public Use
  Company Number: None

PATIENT
  Age: 65 Year
  Sex: Female

DRUGS (1)
  1. MAVYRET [Suspect]
     Active Substance: GLECAPREVIR\PIBRENTASVIR
     Indication: HEPATIC ENCEPHALOPATHY
     Dates: start: 20180803

REACTIONS (2)
  - Infection [None]
  - Dialysis related complication [None]

NARRATIVE: CASE EVENT DATE: 20180824
